FAERS Safety Report 9192791 (Version 2)
Quarter: 2013Q4

REPORT INFORMATION
  Report Type: Spontaneous
  Country: FR (occurrence: FR)
  Receive Date: 20130327
  Receipt Date: 20131009
  Transmission Date: 20140711
  Serious: Yes (Disabling)
  Sender: FDA-Public Use
  Company Number: FR-PFIZER INC-2013092504

PATIENT
  Age: 17 Year
  Sex: Female
  Weight: 56 kg

DRUGS (12)
  1. REVATIO [Suspect]
     Indication: PULMONARY ARTERIAL HYPERTENSION
     Dosage: 40 MG, 2X/DAY
     Route: 048
     Dates: start: 200709
  2. REVATIO [Suspect]
     Dosage: 60 MG, 2X/DAY
     Route: 048
     Dates: start: 200908
  3. REVATIO [Suspect]
     Dosage: 60 MG, 3X/DAY
     Route: 048
     Dates: start: 201001
  4. COUMADINE [Concomitant]
     Indication: ANTICOAGULANT THERAPY
     Dosage: UNK
  5. LASILIX [Concomitant]
     Dosage: UNK
  6. SERETIDE [Concomitant]
     Dosage: 1 MG, 2X/DAY
  7. BURINEX [Concomitant]
  8. EFFERALGAN [Concomitant]
  9. TOPALGIC [Concomitant]
  10. LYRICA [Concomitant]
  11. TARDYFERON [Concomitant]
  12. LUTENYL [Concomitant]

REACTIONS (2)
  - Vasodilatation [Not Recovered/Not Resolved]
  - Hyperaesthesia [Not Recovered/Not Resolved]
